FAERS Safety Report 8777466 (Version 2)
Quarter: 2012Q4

REPORT INFORMATION
  Report Type: 
  Country: US (occurrence: US)
  Receive Date: 20120911
  Receipt Date: 20121016
  Transmission Date: 20130627
  Serious: No
  Sender: FDA-Public Use
  Company Number: US-PFIZER INC-2012219906

PATIENT
  Age: 15 Year
  Sex: Male
  Weight: 30.39 kg

DRUGS (2)
  1. GENOTROPIN [Suspect]
     Indication: TRISOMY 21
     Dosage: 1.2 mg, daily
     Dates: start: 2006
  2. GENOTROPIN [Suspect]
     Dosage: 2 mg, daily

REACTIONS (1)
  - Pain [Unknown]
